FAERS Safety Report 7265465-9 (Version None)
Quarter: 2011Q1

REPORT INFORMATION
  Report Type: 
  Country: None (occurrence: None)
  Receive Date: 20110131
  Receipt Date: 20110120
  Transmission Date: 20110831
  Serious: Yes (Hospitalization)
  Sender: FDA-Public Use
  Company Number: JP-ROCHE-751919

PATIENT
  Sex: Male
  Weight: 65 kg

DRUGS (10)
  1. AZULFIDINE [Concomitant]
     Route: 048
     Dates: start: 20080701
  2. KETOPROFEN [Concomitant]
     Dosage: FORM: TAPE
     Route: 062
     Dates: start: 20080701
  3. ONEALFA [Concomitant]
     Route: 048
     Dates: start: 20080701
  4. PREDNISOLONE [Concomitant]
     Route: 048
     Dates: start: 20090303, end: 20110106
  5. ACTEMRA [Suspect]
     Indication: RHEUMATOID ARTHRITIS
     Dosage: DOSAGE IS UNCERTAIN.
     Route: 041
     Dates: start: 20100706, end: 20101119
  6. PREDNISOLONE [Concomitant]
     Route: 048
     Dates: start: 20110107
  7. PREDNISOLONE [Concomitant]
     Route: 048
     Dates: start: 20080701
  8. GASLON N [Concomitant]
     Route: 048
     Dates: start: 20080701
  9. CELCOX [Concomitant]
     Route: 048
     Dates: start: 20080701
  10. BASEN [Concomitant]
     Route: 048
     Dates: start: 20080701

REACTIONS (4)
  - ARTHRITIS [None]
  - WHITE BLOOD CELL COUNT INCREASED [None]
  - PYREXIA [None]
  - C-REACTIVE PROTEIN INCREASED [None]
